FAERS Safety Report 8964938 (Version 2)
Quarter: 2012Q4

REPORT INFORMATION
  Report Type: Report from Study
  Country: BR (occurrence: BR)
  Receive Date: 20121213
  Receipt Date: 20121228
  Transmission Date: 20130627
  Serious: Yes (Hospitalization, Disabling)
  Sender: FDA-Public Use
  Company Number: BR-ROCHE-745300

PATIENT
  Sex: Female
  Weight: 60 kg

DRUGS (12)
  1. RITUXIMAB [Suspect]
     Indication: RHEUMATOID ARTHRITIS
     Dosage: ROUTE: ENDOVENOUS
     Route: 065
     Dates: start: 20100601, end: 20100701
  2. CIPRAMIL [Concomitant]
     Route: 065
  3. TRYPTANOL [Concomitant]
     Route: 065
  4. ARTRODAR [Concomitant]
     Route: 065
  5. TANDRILAX [Concomitant]
     Indication: PAIN
     Route: 065
  6. OXYCONTIN [Concomitant]
     Route: 065
  7. DRAMIN [Concomitant]
     Indication: PREMEDICATION
  8. PARACETAMOL [Concomitant]
     Indication: PREMEDICATION
  9. OMEPRAZOLE [Concomitant]
  10. AMITRIPTYLINE [Concomitant]
  11. METHOTREXATE [Concomitant]
     Route: 065
  12. ARTRODAR [Concomitant]

REACTIONS (13)
  - Breast cancer [Recovered/Resolved]
  - Bone disorder [Unknown]
  - Breast mass [Recovered/Resolved]
  - Gait disturbance [Unknown]
  - Decreased appetite [Not Recovered/Not Resolved]
  - Nausea [Not Recovered/Not Resolved]
  - Dizziness [Not Recovered/Not Resolved]
  - Pain [Not Recovered/Not Resolved]
  - Drug ineffective [Not Recovered/Not Resolved]
  - Pain [Not Recovered/Not Resolved]
  - Neck pain [Unknown]
  - Pain in extremity [Unknown]
  - Headache [Not Recovered/Not Resolved]
